FAERS Safety Report 5190509-8 (Version None)
Quarter: 2006Q4

REPORT INFORMATION
  Report Type: 
  Country: None (occurrence: None)
  Receive Date: 20061222
  Receipt Date: 20061215
  Transmission Date: 20070319
  Serious: Yes (Hospitalization)
  Sender: FDA-Public Use
  Company Number: FR-GLAXOSMITHKLINE-B0450905A

PATIENT
  Age: 94 Year
  Sex: Male

DRUGS (7)
  1. DEROXAT [Suspect]
     Indication: DYSTHYMIC DISORDER
     Dosage: 20MG PER DAY
     Route: 048
  2. EQUANIL [Suspect]
     Indication: SLEEP DISORDER
     Dosage: 400MG PER DAY
     Route: 048
  3. LASIX [Suspect]
     Indication: CARDIOVASCULAR DISORDER
     Dosage: 10MG PER DAY
     Route: 048
  4. ALLOPURINOL-RATIOPHARM [Suspect]
     Indication: GOUT
     Dosage: 200MG PER DAY
     Route: 048
  5. PLAVIX [Suspect]
     Indication: CEREBROVASCULAR DISORDER
     Dosage: 75MG PER DAY
     Route: 048
     Dates: end: 20061028
  6. TRINIPATCH [Suspect]
     Indication: ANGINA PECTORIS
     Dosage: 5MG PER DAY
     Route: 061
  7. VAXIGRIP [Suspect]
     Indication: PROPHYLAXIS
     Route: 065
     Dates: start: 20061026, end: 20061026

REACTIONS (10)
  - AMNESIA [None]
  - CEREBRAL HYGROMA [None]
  - DIZZINESS [None]
  - FALL [None]
  - HAEMATOMA [None]
  - MALAISE [None]
  - ORTHOSTATIC HYPOTENSION [None]
  - PETECHIAE [None]
  - SUBDURAL HAEMATOMA [None]
  - WOUND [None]
